FAERS Safety Report 24200118 (Version 2)
Quarter: 2024Q3

REPORT INFORMATION
  Report Type: Spontaneous
  Country: GR (occurrence: GR)
  Receive Date: 20240812
  Receipt Date: 20240925
  Transmission Date: 20241017
  Serious: No
  Sender: PFIZER
  Company Number: GR-PFIZER INC-PV202400103368

PATIENT
  Age: 14 Year
  Sex: Male
  Weight: 41 kg

DRUGS (1)
  1. GENOTROPIN [Suspect]
     Active Substance: SOMATROPIN
     Indication: Growth hormone deficiency
     Dosage: 1.6 MG, DAILY / 12 MG PEN
     Route: 058
     Dates: start: 202310

REACTIONS (2)
  - Drug dose omission by device [Unknown]
  - Device physical property issue [Unknown]

NARRATIVE: CASE EVENT DATE: 20240806
